FAERS Safety Report 16140034 (Version 1)
Quarter: 2019Q2

REPORT INFORMATION
  Report Type: Spontaneous
  Country: US (occurrence: US)
  Receive Date: 20190329
  Receipt Date: 20190329
  Transmission Date: 20190711
  Serious: No
  Sender: FDA-Public Use
  Company Number: None

PATIENT
  Age: 76 Year
  Sex: Male
  Weight: 87.75 kg

DRUGS (12)
  1. AMLODIPINE [Concomitant]
     Active Substance: AMLODIPINE BESYLATE
  2. MULTIVITAMIN SUPPLEMENT [Concomitant]
  3. FISH OIL [Concomitant]
     Active Substance: FISH OIL
  4. CANDESARTAN. [Concomitant]
     Active Substance: CANDESARTAN
  5. ZETIA [Concomitant]
     Active Substance: EZETIMIBE
  6. ASPIRIN 81 MG [Concomitant]
     Active Substance: ASPIRIN
  7. CIALIS [Concomitant]
     Active Substance: TADALAFIL
  8. CLORAZEPATE DIPOT [Concomitant]
     Active Substance: CLORAZEPATE DIPOTASSIUM
  9. GLUCOSAMINE/CHONDROITIN SULFATE [Concomitant]
  10. QUINAPRIL. [Suspect]
     Active Substance: QUINAPRIL
     Indication: HYPERTENSION
     Dosage: ?          QUANTITY:1 TABLET(S);?
     Route: 048
     Dates: start: 20181025, end: 20190319
  11. SIMVASTATIN. [Concomitant]
     Active Substance: SIMVASTATIN
  12. COQ10 [Concomitant]
     Active Substance: UBIDECARENONE

REACTIONS (2)
  - Product substitution issue [None]
  - Cough [None]

NARRATIVE: CASE EVENT DATE: 20181215
